FAERS Safety Report 20258133 (Version 1)
Quarter: 2021Q4

REPORT INFORMATION
  Report Type: Spontaneous
  Country: CZ (occurrence: CZ)
  Receive Date: 20211230
  Receipt Date: 20211230
  Transmission Date: 20220303
  Serious: Yes (Disabling, Other)
  Sender: FDA-Public Use
  Company Number: None

PATIENT
  Age: 89 Year
  Sex: Male
  Weight: 81 kg

DRUGS (3)
  1. XARELTO [Suspect]
     Active Substance: RIVAROXABAN
     Indication: Atrial fibrillation
     Route: 048
     Dates: start: 202109, end: 20211013
  2. XARELTO [Suspect]
     Active Substance: RIVAROXABAN
     Indication: Atrial flutter
     Route: 048
  3. BIOFLAVONOIDS NOS [Concomitant]
     Indication: Varicose vein
     Route: 048
     Dates: start: 2019

REACTIONS (6)
  - Oedema [Recovering/Resolving]
  - Choroidal neovascularisation [Recovering/Resolving]
  - Choroidal haemorrhage [Recovering/Resolving]
  - Macular oedema [Recovering/Resolving]
  - Retinal haemorrhage [Recovering/Resolving]
  - Visual impairment [Recovering/Resolving]

NARRATIVE: CASE EVENT DATE: 20211001
